FAERS Safety Report 8826332 (Version 1)
Quarter: 2012Q4

REPORT INFORMATION
  Report Type: Report from Study
  Country: JP (occurrence: JP)
  Receive Date: 20121005
  Receipt Date: 20121005
  Transmission Date: 20130627
  Serious: Yes (Life-Threatening, Hospitalization, Other)
  Sender: FDA-Public Use
  Company Number: JP-ROCHE-1138544

PATIENT
  Age: 67 Year
  Sex: Female

DRUGS (34)
  1. ROACTEMRA [Suspect]
     Indication: RHEUMATOID ARTHRITIS
     Route: 041
     Dates: start: 20091027, end: 20091027
  2. ROACTEMRA [Suspect]
     Indication: RHEUMATOID ARTHRITIS
     Route: 041
     Dates: start: 20091202, end: 20091202
  3. ROACTEMRA [Suspect]
     Indication: RHEUMATOID ARTHRITIS
     Route: 041
     Dates: start: 20100104, end: 20100104
  4. ROACTEMRA [Suspect]
     Indication: RHEUMATOID ARTHRITIS
     Route: 041
     Dates: start: 20100216, end: 20100216
  5. ROACTEMRA [Suspect]
     Indication: RHEUMATOID ARTHRITIS
     Route: 041
     Dates: start: 20100312, end: 20100312
  6. ROACTEMRA [Suspect]
     Indication: RHEUMATOID ARTHRITIS
     Route: 041
     Dates: start: 20100409, end: 20100409
  7. ROACTEMRA [Suspect]
     Indication: RHEUMATOID ARTHRITIS
     Dosage: 280-320mg
     Route: 041
     Dates: start: 20100507, end: 20100730
  8. ROACTEMRA [Suspect]
     Indication: RHEUMATOID ARTHRITIS
     Dosage: 280-320mg
     Route: 041
     Dates: start: 20100903, end: 20110210
  9. PREDNISOLONE [Suspect]
     Indication: RHEUMATOID ARTHRITIS
     Route: 048
     Dates: end: 20091228
  10. PREDNISOLONE [Suspect]
     Indication: RHEUMATOID ARTHRITIS
     Route: 048
     Dates: start: 20091229, end: 20100104
  11. PREDNISOLONE [Suspect]
     Indication: RHEUMATOID ARTHRITIS
     Route: 048
     Dates: start: 20100105, end: 20100216
  12. PREDNISOLONE [Suspect]
     Indication: RHEUMATOID ARTHRITIS
     Route: 048
     Dates: start: 20100217, end: 20100312
  13. PREDNISOLONE [Suspect]
     Indication: RHEUMATOID ARTHRITIS
     Route: 048
     Dates: start: 20100313, end: 20100729
  14. PREDNISOLONE [Suspect]
     Indication: RHEUMATOID ARTHRITIS
     Route: 048
     Dates: start: 20100730, end: 20101221
  15. PREDNISOLONE [Suspect]
     Indication: RHEUMATOID ARTHRITIS
     Route: 048
     Dates: start: 20101222, end: 20110118
  16. PREDNISOLONE [Suspect]
     Indication: RHEUMATOID ARTHRITIS
     Route: 048
     Dates: start: 20110119, end: 20110130
  17. PREDNISOLONE [Suspect]
     Indication: RHEUMATOID ARTHRITIS
     Route: 048
     Dates: start: 20110204, end: 20110211
  18. PREDNISOLONE [Suspect]
     Indication: RHEUMATOID ARTHRITIS
     Route: 048
     Dates: start: 20110212
  19. RHEUMATREX [Concomitant]
     Indication: RHEUMATOID ARTHRITIS
     Route: 048
     Dates: end: 20091228
  20. ISCOTIN [Concomitant]
     Indication: ANTIBIOTIC PROPHYLAXIS
     Route: 048
  21. OMEPRAL [Concomitant]
     Indication: PROPHYLAXIS
     Route: 048
  22. FOLIAMIN [Concomitant]
     Indication: PROPHYLAXIS
     Route: 048
  23. TALION (JAPAN) [Concomitant]
     Indication: DERMATITIS ALLERGIC
     Route: 048
     Dates: start: 20090109
  24. CELECOX [Concomitant]
     Indication: RHEUMATOID ARTHRITIS
     Route: 048
     Dates: end: 2009
  25. CELECOX [Concomitant]
     Indication: RHEUMATOID ARTHRITIS
     Route: 048
     Dates: start: 20091027, end: 20110130
  26. ALENDRONATE SODIUM [Concomitant]
     Indication: PROPHYLAXIS
     Route: 048
     Dates: start: 20100216, end: 20101221
  27. FERO-GRADUMET [Concomitant]
     Indication: ANAEMIA
     Route: 048
     Dates: start: 20100730, end: 20110130
  28. CINAL [Concomitant]
     Route: 048
     Dates: start: 20100730, end: 20110130
  29. FORTEO [Concomitant]
     Indication: PROPHYLAXIS
     Route: 058
     Dates: start: 20101221, end: 20110130
  30. JANUVIA [Concomitant]
     Route: 048
     Dates: start: 20110211
  31. SLOW-K [Concomitant]
     Route: 048
     Dates: start: 20110210, end: 20110213
  32. SLOW-K [Concomitant]
     Route: 048
     Dates: start: 20110214
  33. PREDONINE [Concomitant]
     Indication: RHEUMATOID ARTHRITIS
     Route: 042
     Dates: start: 20110131, end: 20110131
  34. PREDONINE [Concomitant]
     Indication: RHEUMATOID ARTHRITIS
     Route: 042
     Dates: start: 20110201, end: 20110203

REACTIONS (5)
  - Urinary tract infection [Recovered/Resolved]
  - Acute myocardial infarction [Recovering/Resolving]
  - Urinary tract infection [Recovering/Resolving]
  - Diabetes mellitus [Unknown]
  - Vascular pseudoaneurysm [Unknown]
